FAERS Safety Report 5935392-5 (Version None)
Quarter: 2008Q4

REPORT INFORMATION
  Report Type: 
  Country: None (occurrence: None)
  Receive Date: 20081030
  Receipt Date: 20081021
  Transmission Date: 20090506
  Serious: Yes (Other)
  Sender: FDA-Public Use
  Company Number: AU-JNJFOC-20081004812

PATIENT
  Age: 42 Year
  Sex: Male
  Weight: 88 kg

DRUGS (7)
  1. PREZISTA [Suspect]
     Indication: HIV INFECTION
     Route: 048
  2. EFAVIRENZ [Suspect]
     Indication: HIV INFECTION
     Route: 048
  3. ATAZANAVIR SULFATE [Concomitant]
     Indication: HIV INFECTION
  4. ENFURVITIDE [Concomitant]
     Indication: HIV INFECTION
  5. RITONAVIR [Concomitant]
     Indication: HIV INFECTION
  6. TENOFOVIR DISOPROXIL FUMARATE [Concomitant]
     Indication: HIV INFECTION
  7. VALACYCLOVIR [Concomitant]
     Indication: HERPES SIMPLEX

REACTIONS (6)
  - AGGRESSION [None]
  - DEPRESSION [None]
  - DIARRHOEA [None]
  - MOOD SWINGS [None]
  - PSYCHOTIC DISORDER [None]
  - SUICIDAL IDEATION [None]
